FAERS Safety Report 11659540 (Version 6)
Quarter: 2017Q4

REPORT INFORMATION
  Report Type: Report from Study
  Country: GB (occurrence: GB)
  Receive Date: 20151026
  Receipt Date: 20171002
  Transmission Date: 20180320
  Serious: Yes (Hospitalization)
  Sender: FDA-Public Use
  Company Number: GB-ROCHE-1649162

PATIENT
  Age: 56 Year
  Sex: Female
  Weight: 60 kg

DRUGS (15)
  1. SENNA [Concomitant]
     Active Substance: SENNA LEAF\SENNOSIDES\SENNOSIDES A AND B
     Route: 065
     Dates: start: 20140725
  2. IBUPROFEN FAST GEL [Concomitant]
     Route: 065
  3. INDAPAMIDE. [Concomitant]
     Active Substance: INDAPAMIDE
     Route: 065
  4. CARBOPLATIN. [Concomitant]
     Active Substance: CARBOPLATIN
     Route: 065
     Dates: start: 20140519, end: 20140909
  5. AMILORIDE [Concomitant]
     Active Substance: AMILORIDE
     Route: 065
  6. ADCAL D3 [Concomitant]
     Active Substance: CALCIUM CARBONATE\CHOLECALCIFEROL
     Route: 065
  7. AMLODIPINE [Concomitant]
     Active Substance: AMLODIPINE BESYLATE
     Route: 065
  8. PACLITAXEL. [Concomitant]
     Active Substance: PACLITAXEL
     Route: 065
     Dates: start: 20140519, end: 20140909
  9. BEVACIZUMAB. [Suspect]
     Active Substance: BEVACIZUMAB
     Indication: OVARIAN CANCER
     Dosage: LAST DOSE PRIOR TO SAE 09/SEP/2014
     Route: 042
     Dates: start: 20140519
  10. LAMOTRIGINE. [Suspect]
     Active Substance: LAMOTRIGINE
     Indication: PRODUCT USED FOR UNKNOWN INDICATION
     Route: 065
  11. LAMICTAL [Concomitant]
     Active Substance: LAMOTRIGINE
     Route: 065
  12. ATORVASTATIN [Concomitant]
     Active Substance: ATORVASTATIN
     Route: 065
  13. DOCUSATE SODIUM. [Concomitant]
     Active Substance: DOCUSATE SODIUM
     Route: 065
     Dates: start: 20140725
  14. TEGRETOL XR [Concomitant]
     Active Substance: CARBAMAZEPINE
     Route: 065
     Dates: start: 1993
  15. RAMIPRIL. [Concomitant]
     Active Substance: RAMIPRIL
     Route: 065

REACTIONS (4)
  - Dizziness [Recovered/Resolved]
  - Dysuria [Recovered/Resolved]
  - Anaemia [Recovered/Resolved]
  - Neutropenic sepsis [Recovered/Resolved]

NARRATIVE: CASE EVENT DATE: 20140803
